FAERS Safety Report 12132944 (Version 1)
Quarter: 2016Q1

REPORT INFORMATION
  Report Type: Spontaneous
  Country: FR (occurrence: FR)
  Receive Date: 20160301
  Receipt Date: 20160301
  Transmission Date: 20160526
  Serious: Yes (Other)
  Sender: FDA-Public Use
  Company Number: FR-JNJFOC-20160227680

PATIENT
  Age: 17 Year
  Sex: Female

DRUGS (1)
  1. TRIAFEMI [Suspect]
     Active Substance: ETHINYL ESTRADIOL\NORGESTREL
     Indication: CONTRACEPTION
     Route: 048
     Dates: start: 201501, end: 20160118

REACTIONS (1)
  - Thrombophlebitis superficial [Recovering/Resolving]

NARRATIVE: CASE EVENT DATE: 20160116
